FAERS Safety Report 13735431 (Version 1)
Quarter: 2017Q3

REPORT INFORMATION
  Report Type: Spontaneous
  Country: US (occurrence: US)
  Receive Date: 20170707
  Receipt Date: 20170707
  Transmission Date: 20171127
  Serious: Yes (Hospitalization)
  Sender: FDA-Public Use
  Company Number: None

PATIENT
  Age: 29 Year
  Sex: Female
  Weight: 161 kg

DRUGS (2)
  1. DAPTOMYCIN. [Suspect]
     Active Substance: DAPTOMYCIN
     Indication: CELLULITIS
     Dosage: ?          OTHER DOSE:MG;?
     Route: 041
     Dates: start: 20170706
  2. CEFTAROLINE [Suspect]
     Active Substance: CEFTAROLINE
     Dosage: ?          OTHER DOSE:MG;?
     Route: 041
     Dates: start: 20170706

REACTIONS (5)
  - Rash [None]
  - Cough [None]
  - Pruritus [None]
  - Dyspnoea [None]
  - Sneezing [None]

NARRATIVE: CASE EVENT DATE: 20170706
